FAERS Safety Report 5092801-4 (Version None)
Quarter: 2006Q3

REPORT INFORMATION
  Report Type: 
  Country: None (occurrence: None)
  Receive Date: 20060828
  Receipt Date: 20060816
  Transmission Date: 20061208
  Serious: Yes (Hospitalization, Other)
  Sender: FDA-Public Use
  Company Number: HQWYE324012MAY06

PATIENT
  Age: 45 Year
  Sex: Male

DRUGS (8)
  1. RAPAMUNE [Suspect]
     Indication: PROPHYLAXIS AGAINST TRANSPLANT REJECTION
     Dosage: 2 MG 1X PER 1 DAY ORAL
     Route: 048
     Dates: start: 20040226
  2. PREDNISONE (PREDNISONE), 10 MG [Concomitant]
  3. MYCOPHENOLATE MOFETIL [Concomitant]
  4. BACTRIM [Concomitant]
  5. ATENOLO (ATENOLOL) [Concomitant]
  6. CLONIDINE [Concomitant]
  7. SIMVASTATIN 9SIMVASTATIN) [Concomitant]
  8. ENALAPRIL MALEATE [Concomitant]

REACTIONS (2)
  - INFECTION [None]
  - SKIN ULCER [None]
